FAERS Safety Report 4923706-4 (Version None)
Quarter: 2006Q1

REPORT INFORMATION
  Report Type: 
  Country: None (occurrence: None)
  Receive Date: 20060227
  Receipt Date: 20051003
  Transmission Date: 20060701
  Serious: Yes (Hospitalization)
  Sender: FDA-Public Use
  Company Number: US-MERCK-0510USA02696

PATIENT
  Age: 64 Year
  Sex: Female
  Weight: 85 kg

DRUGS (6)
  1. WELLBUTRIN [Concomitant]
     Route: 065
  2. SINEQUAN [Concomitant]
     Route: 065
  3. VIOXX [Suspect]
     Indication: ARTHRITIS
     Route: 048
     Dates: start: 20030904, end: 20040425
  4. ZOCOR [Concomitant]
     Route: 048
  5. HYZAAR [Concomitant]
     Route: 048
  6. [THERAPY UNSPECIFIED] [Concomitant]
     Route: 065

REACTIONS (4)
  - ANXIETY [None]
  - DEPRESSION [None]
  - MYOCARDIAL INFARCTION [None]
  - OEDEMA PERIPHERAL [None]
